FAERS Safety Report 23369552 (Version 1)
Quarter: 2024Q1

REPORT INFORMATION
  Report Type: Report from Study
  Country: US (occurrence: US)
  Receive Date: 20240105
  Receipt Date: 20240105
  Transmission Date: 20240410
  Serious: Yes (Death)
  Sender: FDA-Public Use
  Company Number: US-MIRATI-MT2023PM05657

PATIENT
  Sex: Male

DRUGS (1)
  1. KRAZATI [Suspect]
     Active Substance: ADAGRASIB
     Indication: Cholangiocarcinoma
     Dosage: 600 MG, BID
     Route: 048
     Dates: start: 202306, end: 20231024

REACTIONS (1)
  - Death [Fatal]

NARRATIVE: CASE EVENT DATE: 20231024
